FAERS Safety Report 5918827-3 (Version None)
Quarter: 2008Q4

REPORT INFORMATION
  Report Type: 
  Country: None (occurrence: None)
  Receive Date: 20081010
  Receipt Date: 20080930
  Transmission Date: 20090506
  Serious: Yes (Hospitalization)
  Sender: FDA-Public Use
  Company Number: IPS_01293_2008

PATIENT
  Age: 74 Year

DRUGS (2)
  1. APOMORPHINE HYDROCHLORIDE (APOMORPHINE - APOMORPHINE HYDROCHLORIDE ) [Suspect]
     Indication: DRUG USE FOR UNKNOWN INDICATION
     Dosage: (260 MG FOR 8 WEEKS [150 MG DURING THE DAY / 110 MG AT NIGHT] SUBCUTANEOUS)
     Route: 058
     Dates: start: 20080101, end: 20080101
  2. APOMORPHINE HYDROCHLORIDE (APOMORPHINE - APOMORPHINE HYDROCHLORIDE) [Suspect]
     Indication: DRUG USE FOR UNKNOWN INDICATION
     Dosage: (100 MG FOR [DURING THE DAY] SUBCUTANEOUS)
     Route: 058
     Dates: start: 20080101

REACTIONS (3)
  - CONFUSIONAL STATE [None]
  - HALLUCINATION [None]
  - PARANOIA [None]
